FAERS Safety Report 10422311 (Version 2)
Quarter: 2014Q3

REPORT INFORMATION
  Report Type: Report from Study
  Country: BR (occurrence: BR)
  Receive Date: 20140901
  Receipt Date: 20140915
  Transmission Date: 20150326
  Serious: Yes (Other)
  Sender: FDA-Public Use
  Company Number: PHHY2014BR108835

PATIENT
  Sex: Female
  Weight: 68 kg

DRUGS (5)
  1. CAPTOPRIL. [Concomitant]
     Active Substance: CAPTOPRIL
     Indication: HYPERTENSION
     Dosage: 3 DF (5 OR 10 MG), DAILY
     Route: 048
  2. ROXAR [Suspect]
     Active Substance: ROXITHROMYCIN
     Indication: BRAIN NEOPLASM
     Dosage: 2 - 3 ML, Q12H
     Dates: start: 1992
  3. SANDOSTATIN LAR DEPOT [Suspect]
     Active Substance: OCTREOTIDE ACETATE
     Indication: BRAIN NEOPLASM
     Dosage: UNK UKN, QMO
  4. SANDOSTATIN LAR DEPOT [Suspect]
     Active Substance: OCTREOTIDE ACETATE
     Indication: OFF LABEL USE
     Dosage: 2 DF, EVERY 28 DAYS
  5. INSULIN [Concomitant]
     Active Substance: INSULIN NOS
     Indication: DIABETES MELLITUS
     Dosage: 35 MG, QD (15 MG IN THE MORNING AND 20 MG AT NIGHT)
     Dates: start: 1990

REACTIONS (4)
  - Nervousness [Not Recovered/Not Resolved]
  - Stress [Not Recovered/Not Resolved]
  - Ear swelling [Not Recovered/Not Resolved]
  - Brain mass [Not Recovered/Not Resolved]
